FAERS Safety Report 8121591-3 (Version None)
Quarter: 2012Q1

REPORT INFORMATION
  Report Type: 
  Country: None (occurrence: None)
  Receive Date: 20120208
  Receipt Date: 20120131
  Transmission Date: 20120608
  Serious: Yes (Death, Life-Threatening)
  Sender: FDA-Public Use
  Company Number: JP-CELGENEUS-087-50794-12013228

PATIENT
  Age: 78 Year
  Sex: Female

DRUGS (3)
  1. VIDAZA [Suspect]
     Dosage: 50 MILLIGRAM
     Route: 041
     Dates: start: 20120117, end: 20120121
  2. VIDAZA [Suspect]
     Dosage: 50 MILLIGRAM
     Route: 041
  3. VIDAZA [Suspect]
     Dosage: 50 MILLIGRAM
     Route: 041

REACTIONS (4)
  - DEPRESSED LEVEL OF CONSCIOUSNESS [None]
  - PYREXIA [None]
  - RESPIRATORY FAILURE [None]
  - BONE MARROW NECROSIS [None]
